FAERS Safety Report 6679319-X (Version None)
Quarter: 2010Q2

REPORT INFORMATION
  Report Type: 
  Country: None (occurrence: None)
  Receive Date: 20100413
  Receipt Date: 20100401
  Transmission Date: 20101027
  Serious: Yes (Other)
  Sender: FDA-Public Use
  Company Number: CA-JNJCH-2010001872

PATIENT
  Sex: Male

DRUGS (1)
  1. ROLAIDS TAB [Suspect]
     Indication: DYSPEPSIA
     Dosage: TEXT:UNSPECIFIED
     Route: 048

REACTIONS (5)
  - ABDOMINAL PAIN UPPER [None]
  - BURNING SENSATION [None]
  - CONDITION AGGRAVATED [None]
  - DYSPEPSIA [None]
  - GASTROINTESTINAL DISORDER [None]
